FAERS Safety Report 23080580 (Version 1)
Quarter: 2023Q4

REPORT INFORMATION
  Report Type: Spontaneous
  Country: US (occurrence: None)
  Receive Date: 20231018
  Receipt Date: 20231018
  Transmission Date: 20240110
  Serious: Yes (Life-Threatening, Hospitalization)
  Sender: FDA-Public Use
  Company Number: None

PATIENT
  Age: 62 Year
  Sex: Male
  Weight: 136 kg

DRUGS (1)
  1. CLINDAMYCIN PHOSPHATE (CLINDAMYCIN PHOSPHATE) [Suspect]
     Active Substance: CLINDAMYCIN PHOSPHATE
     Dates: start: 20221104, end: 20221104

REACTIONS (4)
  - Dyspnoea [None]
  - Hyperhidrosis [None]
  - Increased upper airway secretion [None]
  - Nasal congestion [None]

NARRATIVE: CASE EVENT DATE: 20221104
